FAERS Safety Report 7720529-8 (Version None)
Quarter: 2011Q3

REPORT INFORMATION
  Report Type: 
  Country: None (occurrence: None)
  Receive Date: 20110831
  Receipt Date: 20110831
  Transmission Date: 20111222
  Serious: Yes (Hospitalization)
  Sender: FDA-Public Use
  Company Number: None

PATIENT
  Sex: Female
  Weight: 64.863 kg

DRUGS (2)
  1. ERBITUX [Suspect]
     Indication: NON-SMALL CELL LUNG CANCER
     Dosage: 432MG
     Route: 042
     Dates: start: 20090515, end: 20090522
  2. ERLOTINIB HYDROCHLORIDE [Concomitant]
     Indication: NON-SMALL CELL LUNG CANCER
     Dosage: 150MG
     Route: 048
     Dates: start: 20090515, end: 20090527

REACTIONS (4)
  - SINUS TACHYCARDIA [None]
  - PULMONARY INFARCTION [None]
  - PULMONARY EMBOLISM [None]
  - THROMBOSIS [None]
